FAERS Safety Report 13303950 (Version 1)
Quarter: 2017Q1

REPORT INFORMATION
  Report Type: Not Available
  Country: US (occurrence: US)
  Receive Date: 20170307
  Receipt Date: 20170307
  Transmission Date: 20170428
  Serious: Yes (Other)
  Sender: FDA-Public Use
  Company Number: US--2017-US-000023

PATIENT
  Age: 17 Year
  Sex: Male

DRUGS (10)
  1. WARFARIN [Suspect]
     Active Substance: WARFARIN
  2. VALIUM [Suspect]
     Active Substance: DIAZEPAM
  3. METOPROLOL. [Suspect]
     Active Substance: METOPROLOL
  4. CITALOPRAM [Suspect]
     Active Substance: CITALOPRAM HYDROBROMIDE
  5. DIPHENHYDRAMINE. [Suspect]
     Active Substance: DIPHENHYDRAMINE
  6. FUROSEMIDE. [Suspect]
     Active Substance: FUROSEMIDE
  7. ZOLPIDEM TARTRATE BRAND UNSPECIFIED (VIVIMED) [Suspect]
     Active Substance: ZOLPIDEM TARTRATE
  8. TRAZODONE [Suspect]
     Active Substance: TRAZODONE HYDROCHLORIDE
  9. LEVOTHYROXINE. [Suspect]
     Active Substance: LEVOTHYROXINE
  10. AMLODIPINE BESYLATE BRAND UNSPECIFIED (VIVIMED) [Suspect]
     Active Substance: AMLODIPINE BESYLATE
     Indication: SUICIDE ATTEMPT

REACTIONS (7)
  - Blood glucose increased [None]
  - Overdose [Unknown]
  - Suicide attempt [Unknown]
  - Mental status changes [None]
  - Hypotension [None]
  - Circulatory collapse [None]
  - Cardiac arrest [Recovered/Resolved]
